FAERS Safety Report 8552599-1 (Version None)
Quarter: 2012Q2

REPORT INFORMATION
  Report Type: 
  Country: None (occurrence: None)
  Receive Date: 20120416
  Receipt Date: 20091204
  Transmission Date: 20120825
  Serious: Yes (Other)
  Sender: FDA-Public Use
  Company Number: PHEH2009US17006

PATIENT
  Age: 87 Year
  Sex: Female
  Weight: 98 kg

DRUGS (5)
  1. METOPROLOL TARTRATE [Concomitant]
  2. ZOLOFT [Suspect]
     Indication: DEMENTIA
     Dosage: 12.5 MG DAILY, ORAL
     Route: 047
     Dates: start: 20091008, end: 20091015
  3. LISINOPRIL [Concomitant]
  4. EVISTA [Concomitant]
  5. EXELON [Suspect]
     Indication: DEMENTIA
     Dosage: TRANSERMAL
     Dates: start: 20091008, end: 20091015

REACTIONS (1)
  - HALLUCINATION [None]
